FAERS Safety Report 8329940-8 (Version None)
Quarter: 2012Q2

REPORT INFORMATION
  Report Type: 
  Country: None (occurrence: None)
  Receive Date: 20120502
  Receipt Date: 20091123
  Transmission Date: 20120825
  Serious: No
  Sender: FDA-Public Use
  Company Number: US-TEVA-2009029261

PATIENT
  Sex: Female
  Weight: 90.8 kg

DRUGS (8)
  1. NUVIGIL [Suspect]
     Indication: FIBROMYALGIA
     Route: 048
     Dates: start: 20090901
  2. NUVIGIL [Suspect]
     Indication: FATIGUE
  3. KLOR-CON [Concomitant]
  4. LUNESTA [Concomitant]
  5. PREMPRO [Concomitant]
  6. MOTRIN [Concomitant]
  7. LEVOTHYROXINE SODIUM [Concomitant]
  8. AZOR [Concomitant]

REACTIONS (1)
  - LIMB INJURY [None]
